FAERS Safety Report 17323461 (Version 1)
Quarter: 2020Q1

REPORT INFORMATION
  Report Type: Report from Study
  Country: None (occurrence: US)
  Receive Date: 20200127
  Receipt Date: 20200127
  Transmission Date: 20200409
  Serious: Yes (Other)
  Sender: FDA-Public Use
  Company Number: US-ABBVIE-20K-163-3249756-00

PATIENT
  Age: 76 Year

DRUGS (1)
  1. IMBRUVICA [Suspect]
     Active Substance: IBRUTINIB
     Indication: CHRONIC LYMPHOCYTIC LEUKAEMIA
     Route: 065

REACTIONS (24)
  - Cardiac failure congestive [Unknown]
  - Pneumonia [Unknown]
  - Pyrexia [Unknown]
  - Hypertension [Unknown]
  - Infection [Unknown]
  - Rash [Unknown]
  - Dehydration [Unknown]
  - Asthenia [Unknown]
  - Dyspnoea [Unknown]
  - Diarrhoea [Unknown]
  - Cerebrovascular accident [Unknown]
  - Neutropenia [Unknown]
  - Oedema [Unknown]
  - Nausea [Unknown]
  - Haemorrhage [Unknown]
  - Anaemia [Unknown]
  - Constipation [Unknown]
  - Fatigue [Unknown]
  - Vomiting [Unknown]
  - Thrombocytopenia [Unknown]
  - Renal failure [Unknown]
  - Arrhythmia [Unknown]
  - Atrial fibrillation [Unknown]
  - Arthralgia [Unknown]
